FAERS Safety Report 4476579-0 (Version None)
Quarter: 2004Q4

REPORT INFORMATION
  Report Type: 
  Country: None (occurrence: None)
  Receive Date: 20041012
  Receipt Date: 20041001
  Transmission Date: 20050328
  Serious: Yes (Other)
  Sender: FDA-Public Use
  Company Number: 163-20785-04100130

PATIENT

DRUGS (3)
  1. THALOMID [Suspect]
     Indication: NON-SMALL CELL LUNG CANCER
     Dosage: 200 MG PO QHS ON DAY 1 IN Q3WK CYCLES FOR A MAX OF 6 CY; MAY CON'T ALONE FOR 6 MO., ORAL
     Route: 048
  2. PACLITAXEL [Suspect]
     Dosage: 225 MG/M2 OVER 3 HOURS ON DAY 1; IN 3 WK CYCLES TO A MAX OF 6 CYCLES
  3. CARBOPLATIN [Suspect]
     Dosage: AVC 6 OVER 15.30 MIN ON DAY 1 IN 3 WK CYCLES : FOR A MAX OF 6 CYCLES

REACTIONS (23)
  - ALOPECIA [None]
  - ARTHRALGIA [None]
  - ASTHENIA [None]
  - BONE PAIN [None]
  - CONSTIPATION [None]
  - COUGH [None]
  - DIARRHOEA [None]
  - DIZZINESS [None]
  - DYSPEPSIA [None]
  - FATIGUE [None]
  - FLATULENCE [None]
  - HAEMOGLOBIN ABNORMAL [None]
  - INSOMNIA [None]
  - LETHARGY [None]
  - MALAISE [None]
  - MUSCULAR WEAKNESS [None]
  - MYALGIA [None]
  - NAUSEA [None]
  - OEDEMA [None]
  - PALPITATIONS [None]
  - PERIPHERAL SENSORY NEUROPATHY [None]
  - RHINITIS ALLERGIC [None]
  - VOMITING [None]
